FAERS Safety Report 8851993 (Version 1)
Quarter: 2012Q4

REPORT INFORMATION
  Report Type: 
  Country: US (occurrence: US)
  Receive Date: 20121022
  Receipt Date: 20121022
  Transmission Date: 20130627
  Serious: No
  Sender: FDA-Public Use
  Company Number: US-B.I. PHARMACEUTICALS,INC./RIDGEFIELD-2012-BP-25179BP

PATIENT
  Age: 75 Year
  Sex: Female
  Weight: 39 kg

DRUGS (2)
  1. SPIRIVA [Suspect]
     Indication: CHRONIC OBSTRUCTIVE PULMONARY DISEASE
     Dosage: 18 mcg
     Route: 055
     Dates: start: 20120928
  2. SPIRIVA [Suspect]
     Route: 048
     Dates: start: 20121009, end: 20121009

REACTIONS (2)
  - Medication error [Recovered/Resolved]
  - Dizziness [Recovered/Resolved]
